FAERS Safety Report 5445157-9 (Version None)
Quarter: 2007Q3

REPORT INFORMATION
  Report Type: 
  Country: None (occurrence: None)
  Receive Date: 20070730
  Receipt Date: 20070307
  Transmission Date: 20080115
  Serious: Yes (Hospitalization)
  Sender: FDA-Public Use
  Company Number: 237874

PATIENT
  Age: 23 Year
  Sex: Female
  Weight: 118 kg

DRUGS (2)
  1. RITUXAN [Suspect]
     Indication: NON-HODGKIN'S LYMPHOMA
     Dosage: SINGLE, INTRAVENOUS
     Route: 042
  2. PROCRIT [Suspect]
     Indication: ANAEMIA

REACTIONS (2)
  - INFUSION RELATED REACTION [None]
  - RENAL FAILURE [None]
